FAERS Safety Report 8081776-1 (Version None)
Quarter: 2012Q1

REPORT INFORMATION
  Report Type: 
  Country: None (occurrence: None)
  Receive Date: 20120130
  Receipt Date: 20120124
  Transmission Date: 20120608
  Serious: No
  Sender: FDA-Public Use
  Company Number: US-PFIZER INC-2012008167

PATIENT
  Sex: Female
  Weight: 81.633 kg

DRUGS (3)
  1. XALATAN [Suspect]
  2. ALDACTONE [Suspect]
  3. NARDIL [Suspect]

REACTIONS (1)
  - NO ADVERSE EVENT [None]
